FAERS Safety Report 7865744-8 (Version None)
Quarter: 2011Q4

REPORT INFORMATION
  Report Type: 
  Country: None (occurrence: None)
  Receive Date: 20111028
  Receipt Date: 20110216
  Transmission Date: 20120403
  Serious: No
  Sender: FDA-Public Use
  Company Number: US-GLAXOSMITHKLINE-A0913983A

PATIENT
  Age: 58 Year
  Sex: Male

DRUGS (6)
  1. PROAIR HFA [Concomitant]
  2. HYDROCHLOROTHIAZIDE [Concomitant]
  3. ADVAIR DISKUS 100/50 [Suspect]
     Indication: PRODUCT USED FOR UNKNOWN INDICATION
     Route: 055
  4. FINASTERIDE [Concomitant]
  5. DOXAZOSIN MESYLATE [Concomitant]
  6. PREDNISONE [Concomitant]

REACTIONS (2)
  - DRUG INEFFECTIVE [None]
  - PRODUCT QUALITY ISSUE [None]
